FAERS Safety Report 13347534 (Version 2)
Quarter: 2017Q3

REPORT INFORMATION
  Report Type: Report from Study
  Country: None (occurrence: BR)
  Receive Date: 20170317
  Receipt Date: 20170824
  Transmission Date: 20171127
  Serious: Yes (Other)
  Sender: FDA-Public Use
  Company Number: BR-ABBVIE-17P-020-1910599-00

PATIENT
  Age: 68 Year
  Sex: Female
  Weight: 78 kg

DRUGS (5)
  1. SYNTHROID [Suspect]
     Active Substance: LEVOTHYROXINE SODIUM
     Indication: HYPOTHYROIDISM
     Dosage: DAILY DOSE: 88 MCG MORNING (FASTING)
     Route: 048
  2. ALPRAZOLAM. [Concomitant]
     Active Substance: ALPRAZOLAM
     Indication: ANXIOLYTIC THERAPY
     Dosage: DAILY DOSE: 1 TAB AT NIGHT
     Dates: start: 2002
  3. BENICAR HCT [Concomitant]
     Active Substance: HYDROCHLOROTHIAZIDE\OLMESARTAN MEDOXOMIL
     Indication: BLOOD PRESSURE MEASUREMENT
     Dosage: DAILY DOSE 1 TAB (FORM STRENGTH: 20 MG + 12.5 MG)
     Dates: start: 2002
  4. LEXAPRO [Concomitant]
     Active Substance: ESCITALOPRAM OXALATE
     Indication: DEPRESSION
     Dosage: 1 TABLET AT 10:00AM
     Dates: start: 2002
  5. PANTOPRAZOLE [Suspect]
     Active Substance: PANTOPRAZOLE
     Indication: GASTRITIS
     Dosage: FREQUENCY: CONCOMITANT WITH SYNTHROID INTAKE
     Route: 065

REACTIONS (11)
  - Gastrooesophageal reflux disease [Recovered/Resolved]
  - Blood cholesterol increased [Unknown]
  - Weight decreased [Recovering/Resolving]
  - Thyroid hormones increased [Unknown]
  - Thyroid mass [Recovered/Resolved]
  - Gastritis [Recovered/Resolved]
  - Inappropriate schedule of drug administration [Unknown]
  - Rhinitis [Not Recovered/Not Resolved]
  - Blood cholesterol increased [Recovered/Resolved]
  - Oesophagitis [Not Recovered/Not Resolved]
  - Vitamin D deficiency [Unknown]

NARRATIVE: CASE EVENT DATE: 2006
